FAERS Safety Report 9943302 (Version 2)
Quarter: 2014Q1

REPORT INFORMATION
  Report Type: Spontaneous
  Country: US (occurrence: US)
  Receive Date: 20140303
  Receipt Date: 20140319
  Transmission Date: 20141002
  Serious: Yes (Other)
  Sender: FDA-Public Use
  Company Number: US-B.I. PHARMACEUTICALS,INC./RIDGEFIELD-2014-BI-08757BP

PATIENT
  Age: 57 Year
  Sex: Male
  Weight: 68 kg

DRUGS (10)
  1. SPIRIVA [Suspect]
     Indication: CHRONIC OBSTRUCTIVE PULMONARY DISEASE
     Dosage: 18 MCG
     Route: 055
     Dates: start: 201307
  2. CRESTOR [Concomitant]
     Indication: BLOOD CHOLESTEROL INCREASED
     Dosage: 20 MG
     Route: 048
  3. CLOPIDOGREL [Concomitant]
     Dosage: 4 MG
     Route: 048
  4. LOPRESSOR [Concomitant]
     Indication: HYPERTENSION
     Dosage: 25 MG
     Route: 048
  5. BENICAR HCT [Concomitant]
     Indication: HYPERTENSION
     Dosage: DOSE PER APPLICATION: 25 MG/12.5 MG; DAILY DOSE: 25 MG/12.5 MG
     Route: 048
  6. PROTONIX [Concomitant]
     Indication: GASTROOESOPHAGEAL REFLUX DISEASE
     Dosage: 20 MG
     Route: 048
  7. CELEXA [Concomitant]
     Dosage: 20 MG
     Route: 048
  8. ASPIRIN [Concomitant]
     Dosage: 81 MG
     Route: 048
  9. SYMBICORT [Concomitant]
     Indication: CHRONIC OBSTRUCTIVE PULMONARY DISEASE
     Dosage: 2 PUF
     Route: 055
  10. VENTOLIN [Concomitant]
     Indication: CHRONIC OBSTRUCTIVE PULMONARY DISEASE
     Route: 055

REACTIONS (4)
  - Carotid artery occlusion [Not Recovered/Not Resolved]
  - Vascular occlusion [Not Recovered/Not Resolved]
  - Carotid artery stenosis [Unknown]
  - Peripheral arterial occlusive disease [Unknown]
